FAERS Safety Report 24687295 (Version 5)
Quarter: 2024Q4

REPORT INFORMATION
  Report Type: Spontaneous
  Country: US (occurrence: US)
  Receive Date: 20241202
  Receipt Date: 20241211
  Transmission Date: 20250115
  Serious: Yes (Death, Other)
  Sender: GILEAD
  Company Number: US-GILEAD-2024-0695582

PATIENT

DRUGS (1)
  1. YESCARTA [Suspect]
     Active Substance: AXICABTAGENE CILOLEUCEL
     Indication: Product used for unknown indication
     Dosage: UNK
     Route: 042
     Dates: start: 20241111, end: 20241111

REACTIONS (5)
  - Death [Fatal]
  - Respiratory tract haemorrhage [Unknown]
  - Endotracheal intubation [Unknown]
  - Thrombocytopenia [Unknown]
  - Immune effector cell-associated neurotoxicity syndrome [Recovered/Resolved]

NARRATIVE: CASE EVENT DATE: 20241101
